FAERS Safety Report 11074260 (Version 1)
Quarter: 2015Q2

REPORT INFORMATION
  Report Type: Spontaneous
  Country: US (occurrence: None)
  Receive Date: 20150428
  Receipt Date: 20150428
  Transmission Date: 20150821
  Serious: No
  Sender: FDA-Public Use
  Company Number: None

PATIENT
  Age: 74 Year
  Sex: Female
  Weight: 108.86 kg

DRUGS (14)
  1. HYDROCODONE/ACET 5/325 [Concomitant]
  2. ZOLPIDEM [Concomitant]
     Active Substance: ZOLPIDEM\ZOLPIDEM TARTRATE
  3. VITAMIN D3 [Concomitant]
     Active Substance: CHOLECALCIFEROL
  4. KCL [Concomitant]
     Active Substance: POTASSIUM CHLORIDE
  5. METOPROLOL [Concomitant]
     Active Substance: METOPROLOL
  6. ISOSORBID [Concomitant]
  7. LEVOTHYROXIN [Concomitant]
     Active Substance: LEVOTHYROXINE
  8. EFFIENT [Concomitant]
     Active Substance: PRASUGREL HYDROCHLORIDE
  9. ASA [Concomitant]
     Active Substance: ASPIRIN
  10. GLIPIZIDE. [Concomitant]
     Active Substance: GLIPIZIDE
  11. LASIX [Concomitant]
     Active Substance: FUROSEMIDE
  12. IRBESARTAN 150MG TABS SOLCO HEALTHCAR [Suspect]
     Active Substance: IRBESARTAN
     Indication: BLOOD PRESSURE
     Route: 048
     Dates: start: 20150310, end: 20150412
  13. NOVOLIN 70/30 [Concomitant]
     Active Substance: INSULIN HUMAN
  14. VIT B COMPLEX [Concomitant]

REACTIONS (6)
  - Muscular weakness [None]
  - Blood pressure increased [None]
  - Pain [None]
  - Anosmia [None]
  - Dyspepsia [None]
  - Fatigue [None]

NARRATIVE: CASE EVENT DATE: 201503
